FAERS Safety Report 8238146-2 (Version None)
Quarter: 2012Q1

REPORT INFORMATION
  Report Type: 
  Country: None (occurrence: None)
  Receive Date: 20120327
  Receipt Date: 20120312
  Transmission Date: 20120608
  Serious: Yes (Other)
  Sender: FDA-Public Use
  Company Number: TR-ROCHE-1052317

PATIENT

DRUGS (24)
  1. DOCETAXEL [Concomitant]
     Indication: COLON CANCER METASTATIC
  2. DOCETAXEL [Concomitant]
     Indication: METASTATIC GASTRIC CANCER
  3. VINORELBINE [Concomitant]
     Indication: BREAST CANCER METASTATIC
  4. IRINOTECAN HCL [Concomitant]
     Indication: METASTATIC GASTRIC CANCER
  5. LAPATINIB [Concomitant]
     Indication: COLON CANCER METASTATIC
  6. DOCETAXEL [Concomitant]
     Indication: BREAST CANCER METASTATIC
  7. XELODA [Suspect]
     Indication: COLON CANCER METASTATIC
  8. VINORELBINE [Concomitant]
     Indication: NEOPLASM MALIGNANT
     Dosage: ON THE 1ST AND 8TH DAY OF A 21-DAY INTERVAL
  9. VINORELBINE [Concomitant]
     Indication: COLON CANCER METASTATIC
  10. XELODA [Suspect]
     Indication: BREAST CANCER METASTATIC
     Dosage: ON DAY 1 OF 21 DAYS CYCLE. COMBINATION THERAPY
  11. DOCETAXEL [Concomitant]
     Indication: NEOPLASM MALIGNANT
  12. OXALIPLATIN [Concomitant]
     Indication: NEOPLASM MALIGNANT
  13. IRINOTECAN HCL [Concomitant]
     Indication: BREAST CANCER METASTATIC
  14. LAPATINIB [Concomitant]
     Indication: NEOPLASM MALIGNANT
     Dosage: ON DAY 1
  15. OXALIPLATIN [Concomitant]
     Indication: BREAST CANCER METASTATIC
  16. XELODA [Suspect]
     Indication: NEOPLASM MALIGNANT
     Dosage: ON DAY 1 OF 21 DAYS CYCLE. MONOTHERAPY
  17. IRINOTECAN HCL [Concomitant]
     Indication: COLON CANCER METASTATIC
  18. LAPATINIB [Concomitant]
     Indication: METASTATIC GASTRIC CANCER
  19. XELODA [Suspect]
     Indication: METASTATIC GASTRIC CANCER
  20. OXALIPLATIN [Concomitant]
     Indication: METASTATIC GASTRIC CANCER
  21. VINORELBINE [Concomitant]
     Indication: METASTATIC GASTRIC CANCER
  22. OXALIPLATIN [Concomitant]
     Indication: COLON CANCER METASTATIC
  23. IRINOTECAN HCL [Concomitant]
     Indication: NEOPLASM MALIGNANT
  24. LAPATINIB [Concomitant]
     Indication: BREAST CANCER METASTATIC

REACTIONS (3)
  - ELECTROCARDIOGRAM ST SEGMENT DEPRESSION [None]
  - ELECTROCARDIOGRAM QT PROLONGED [None]
  - ELECTROCARDIOGRAM PR PROLONGATION [None]
